FAERS Safety Report 8582026-X (Version None)
Quarter: 2012Q3

REPORT INFORMATION
  Report Type: 
  Country: None (occurrence: None)
  Receive Date: 20120809
  Receipt Date: 20120806
  Transmission Date: 20120928
  Serious: Yes (Hospitalization)
  Sender: FDA-Public Use
  Company Number: FR-PFIZER INC-2012190238

PATIENT
  Age: 89 Year
  Sex: Female

DRUGS (11)
  1. THERALENE [Suspect]
     Dosage: 10 GTT, 1X/DAY
     Route: 048
     Dates: end: 20120522
  2. TRAMADOL HCL [Suspect]
     Indication: PAIN
     Dosage: 100 MG, 2X/DAY
     Route: 048
     Dates: end: 20120522
  3. OMEPRAZOLE [Suspect]
     Dosage: 10 MG, 1X/DAY
     Route: 048
     Dates: end: 20120522
  4. NASONEX [Suspect]
     Dosage: UNK
     Dates: end: 20120522
  5. POTASSIUM CHLORIDE [Concomitant]
     Dosage: UNK
  6. TEMAZEPAM [Suspect]
     Dosage: 1 DF, 1X/DAY
     Route: 048
     Dates: end: 20120522
  7. INDAPAMIDE [Concomitant]
     Dosage: UNK
  8. ISOSORBIDE DINITRATE [Concomitant]
     Dosage: UNK
  9. EFFEXOR XR [Suspect]
     Dosage: 75 MG, 1X/DAY
     Route: 048
     Dates: end: 20120522
  10. VASTAREL 35 [Concomitant]
     Dosage: UNK
  11. LASILIX 20 [Concomitant]
     Dosage: UNK

REACTIONS (7)
  - DEPRESSED MOOD [None]
  - INSOMNIA [None]
  - ANXIETY [None]
  - CONFUSIONAL STATE [None]
  - DISORIENTATION [None]
  - HYPNAGOGIC HALLUCINATION [None]
  - HALLUCINATIONS, MIXED [None]
